FAERS Safety Report 10507487 (Version 1)
Quarter: 2014Q4

REPORT INFORMATION
  Report Type: Spontaneous
  Country: US (occurrence: None)
  Receive Date: 20141008
  Receipt Date: 20141008
  Transmission Date: 20150528
  Serious: Yes (Life-Threatening)
  Sender: FDA-Public Use
  Company Number: None

PATIENT
  Age: 92 Year
  Sex: Male
  Weight: 62.6 kg

DRUGS (1)
  1. VANCOMYCIN [Suspect]
     Active Substance: VANCOMYCIN
     Route: 042
     Dates: start: 20140113, end: 20140113

REACTIONS (5)
  - Respiratory depression [None]
  - Palpitations [None]
  - Hypotension [None]
  - Rhonchi [None]
  - Tachycardia [None]

NARRATIVE: CASE EVENT DATE: 20140113
